FAERS Safety Report 20176494 (Version 1)
Quarter: 2021Q4

REPORT INFORMATION
  Report Type: Spontaneous
  Country: US (occurrence: None)
  Receive Date: 20211209
  Receipt Date: 20211209
  Transmission Date: 20220303
  Serious: No
  Sender: FDA-Public Use
  Company Number: None

PATIENT
  Age: 62 Year
  Sex: Female
  Weight: 0.45 kg

DRUGS (1)
  1. IVERMECTIN [Suspect]
     Active Substance: IVERMECTIN
     Dosage: OTHER ROUTE : INJECTION;?
     Route: 050

REACTIONS (5)
  - Nausea [None]
  - Vomiting [None]
  - Malaise [None]
  - Visual impairment [None]
  - Extra dose administered [None]
